FAERS Safety Report 19764423 (Version 1)
Quarter: 2021Q3

REPORT INFORMATION
  Report Type: Spontaneous
  Country: TH (occurrence: TH)
  Receive Date: 20210830
  Receipt Date: 20210830
  Transmission Date: 20211014
  Serious: Yes (Hospitalization, Other)
  Sender: FDA-Public Use
  Company Number: TH-NEOS THERAPEUTICS, LP-2021NEO00024

PATIENT
  Age: 40 Year
  Sex: Male

DRUGS (3)
  1. AMPHETAMINE [Suspect]
     Active Substance: AMPHETAMINE
     Dosage: UNK
     Route: 065
  2. AMPHETAMINE [Suspect]
     Active Substance: AMPHETAMINE
     Dosage: UNK, 1X/MONTH
     Route: 065
  3. AMPHETAMINE [Suspect]
     Active Substance: AMPHETAMINE
     Dosage: UNK, EVERY 48 HOURS
     Route: 065

REACTIONS (3)
  - Artery dissection [Recovered/Resolved]
  - Drug abuse [Recovered/Resolved]
  - Cerebrovascular accident [Recovering/Resolving]
